FAERS Safety Report 5947562-0 (Version None)
Quarter: 2008Q4

REPORT INFORMATION
  Report Type: 
  Country: None (occurrence: None)
  Receive Date: 20081110
  Receipt Date: 20081105
  Transmission Date: 20090506
  Serious: Yes (Disabling, Other)
  Sender: FDA-Public Use
  Company Number: PHHO2008GB08161

PATIENT
  Weight: 86 kg

DRUGS (5)
  1. ZOLEDRONATE T29581+SOLINJ+BM [Suspect]
     Indication: METASTASES TO BONE
     Dosage: 4 MG, UNK
     Route: 042
     Dates: start: 20050720
  2. VITAMIN D [Concomitant]
     Dosage: UNK
     Dates: start: 20050720
  3. CALCIUM [Concomitant]
     Dosage: UNK
     Dates: start: 20050720
  4. DOXYCYCLINE [Concomitant]
  5. ANTIBIOTICS [Concomitant]

REACTIONS (4)
  - IMPAIRED HEALING [None]
  - OSTEONECROSIS [None]
  - PAIN [None]
  - TOOTH EXTRACTION [None]
